FAERS Safety Report 9054623 (Version 2)
Quarter: 2013Q1

REPORT INFORMATION
  Report Type: Spontaneous
  Country: CA (occurrence: CA)
  Receive Date: 20130208
  Receipt Date: 20130222
  Transmission Date: 20140127
  Serious: Yes (Other)
  Sender: FDA-Public Use
  Company Number: CA-JNJFOC-20130114228

PATIENT
  Age: 0 None
  Sex: Male
  Weight: 4.54 kg

DRUGS (1)
  1. INFANTS TYLENOL [Suspect]
     Indication: INFLUENZA
     Route: 048
     Dates: start: 20130124

REACTIONS (3)
  - Heart rate increased [Recovering/Resolving]
  - Dyspnoea [Recovering/Resolving]
  - Malaise [None]
